FAERS Safety Report 23538590 (Version 1)
Quarter: 2024Q1

REPORT INFORMATION
  Report Type: Spontaneous
  Country: SG (occurrence: None)
  Receive Date: 20240219
  Receipt Date: 20240219
  Transmission Date: 20240410
  Serious: Yes (Hospitalization, Other)
  Sender: FDA-Public Use
  Company Number: SG-Unichem Pharmaceuticals (USA) Inc-UCM202402-000142

PATIENT
  Age: 74 Year
  Sex: Male

DRUGS (4)
  1. METFORMIN HYDROCHLORIDE [Suspect]
     Active Substance: METFORMIN HYDROCHLORIDE
     Indication: Type 2 diabetes mellitus
  2. ASPIRIN [Concomitant]
     Active Substance: ASPIRIN
     Indication: Infarction
     Dosage: UNKNOWN
  3. CLOPIDOGREL [Concomitant]
     Active Substance: CLOPIDOGREL BISULFATE
     Indication: Infarction
     Dosage: UNKNOWN
  4. DIAZEPAM [Concomitant]
     Active Substance: DIAZEPAM
     Route: 054

REACTIONS (10)
  - Euglycaemic diabetic ketoacidosis [Recovered/Resolved]
  - Mental status changes [Recovered/Resolved]
  - Seizure [Recovered/Resolved]
  - Acute kidney injury [Recovered/Resolved]
  - Electrolyte imbalance [Recovered/Resolved]
  - Atrial fibrillation [Recovered/Resolved]
  - Delirium [Recovered/Resolved]
  - Physical deconditioning [Recovered/Resolved]
  - Shock [Recovered/Resolved]
  - Lactic acidosis [Recovered/Resolved]
